FAERS Safety Report 5041908-6 (Version None)
Quarter: 2006Q2

REPORT INFORMATION
  Report Type: 
  Country: None (occurrence: None)
  Receive Date: 20060627
  Receipt Date: 20060607
  Transmission Date: 20061013
  Serious: Yes (Death)
  Sender: FDA-Public Use
  Company Number: US200606001705

PATIENT
  Age: 105 Year
  Sex: Female

DRUGS (1)
  1. HUMULIN N [Suspect]
     Dates: end: 20060201

REACTIONS (1)
  - MYOCARDIAL INFARCTION [None]
